FAERS Safety Report 5730421-6 (Version None)
Quarter: 2008Q2

REPORT INFORMATION
  Report Type: 
  Country: None (occurrence: None)
  Receive Date: 20080505
  Receipt Date: 20080505
  Transmission Date: 20081010
  Serious: Yes (Life-Threatening, Hospitalization)
  Sender: FDA-Public Use
  Company Number: None

PATIENT
  Age: 57 Year
  Sex: Male

DRUGS (2)
  1. TACROLIMUS [Suspect]
     Indication: IMMUNOSUPPRESSANT DRUG THERAPY
     Dosage: 1.5 MG BID PO
     Route: 048
     Dates: start: 20070811, end: 20070918
  2. TACROLIMUS [Suspect]
     Indication: PROPHYLAXIS AGAINST GRAFT VERSUS HOST DISEASE
     Dosage: 1.5 MG BID PO
     Route: 048
     Dates: start: 20070811, end: 20070918

REACTIONS (2)
  - GRAFT VERSUS HOST DISEASE [None]
  - THROMBOTIC THROMBOCYTOPENIC PURPURA [None]
